FAERS Safety Report 4959437-4 (Version None)
Quarter: 2006Q1

REPORT INFORMATION
  Report Type: 
  Country: None (occurrence: None)
  Receive Date: 20060331
  Receipt Date: 20050930
  Transmission Date: 20060701
  Serious: Yes (Hospitalization, Disabling)
  Sender: FDA-Public Use
  Company Number: US-MERCK-0510USA00943

PATIENT
  Age: 47 Year
  Sex: Female
  Weight: 102 kg

DRUGS (1)
  1. VIOXX [Suspect]
     Indication: CARPAL TUNNEL SYNDROME
     Route: 048
     Dates: start: 20000501, end: 20030823

REACTIONS (14)
  - ANGINA PECTORIS [None]
  - ANGIOPATHY [None]
  - ARRHYTHMIA [None]
  - CARDIOVASCULAR DISORDER [None]
  - CEREBROVASCULAR ACCIDENT [None]
  - HYSTERECTOMY [None]
  - INTERVERTEBRAL DISC DISORDER [None]
  - INTERVERTEBRAL DISC OPERATION [None]
  - MYOCARDIAL INFARCTION [None]
  - ORGAN FAILURE [None]
  - POLYTRAUMATISM [None]
  - PULMONARY EMBOLISM [None]
  - THROMBOSIS [None]
  - UTERINE DISORDER [None]
